FAERS Safety Report 18443486 (Version 2)
Quarter: 2020Q4

REPORT INFORMATION
  Report Type: Spontaneous
  Country: US (occurrence: US)
  Receive Date: 20201030
  Receipt Date: 20201216
  Transmission Date: 20210114
  Serious: No
  Sender: FDA-Public Use
  Company Number: US-B.I. PHARMACEUTICALS,INC./RIDGEFIELD-2020-BI-058524

PATIENT
  Age: 77 Year
  Sex: Female

DRUGS (1)
  1. SPIRIVA [Suspect]
     Active Substance: TIOTROPIUM BROMIDE MONOHYDRATE
     Indication: CHRONIC OBSTRUCTIVE PULMONARY DISEASE
     Dosage: 1 CAPSULE QD
     Route: 065
     Dates: start: 2008

REACTIONS (5)
  - Product quality issue [Unknown]
  - Cataract [Not Recovered/Not Resolved]
  - Hypoacusis [Unknown]
  - Product physical issue [Unknown]
  - Overdose [Unknown]

NARRATIVE: CASE EVENT DATE: 20201029
